FAERS Safety Report 5600426-4 (Version None)
Quarter: 2008Q1

REPORT INFORMATION
  Report Type: 
  Country: None (occurrence: None)
  Receive Date: 20080123
  Receipt Date: 20080115
  Transmission Date: 20080703
  Serious: Yes (Hospitalization)
  Sender: FDA-Public Use
  Company Number: PHHO2008FR00934

PATIENT
  Age: 47 Year
  Sex: Female
  Weight: 46.5 kg

DRUGS (4)
  1. MYCOPHENOLIC ACID [Suspect]
     Indication: RENAL TRANSPLANT
     Dosage: 1440 MG DAILY
     Route: 048
     Dates: start: 20070711, end: 20071219
  2. MYCOPHENOLIC ACID [Suspect]
     Dosage: 720 MG DAILY
     Route: 048
     Dates: start: 20071227, end: 20080109
  3. MYCOPHENOLIC ACID [Suspect]
     Dosage: 1440 MG DAILY
     Route: 048
     Dates: start: 20080110
  4. NEORAL [Concomitant]
     Indication: RENAL TRANSPLANT
     Dosage: 200 MG DAILY
     Route: 048
     Dates: start: 20070711

REACTIONS (2)
  - BONE PAIN [None]
  - FEBRILE NEUTROPENIA [None]
